FAERS Safety Report 6536549-5 (Version None)
Quarter: 2010Q1

REPORT INFORMATION
  Report Type: 
  Country: None (occurrence: None)
  Receive Date: 20100106
  Receipt Date: 20091217
  Transmission Date: 20100710
  Serious: Yes (Death)
  Sender: FDA-Public Use
  Company Number: B0621614A

PATIENT

DRUGS (3)
  1. MELPHALAN (MELPHALAN) (FORMULATION UNKNOWN) (GENERIC) [Suspect]
     Indication: MULTIPLE MYELOMA
     Dosage: 200 MG/M2 / UNK / UNKNOWN
  2. FLUDARABINE PHOSPHATE [Suspect]
     Dosage: 90 MG/M2 / UNK / UNKNOWN
  3. CYCLOPHOSPHAMIDE [Suspect]
     Dosage: 900 MG/M2 / UNK / UNKNOWN

REACTIONS (1)
  - DEATH [None]
